FAERS Safety Report 4854922-8 (Version None)
Quarter: 2005Q4

REPORT INFORMATION
  Report Type: 
  Country: None (occurrence: None)
  Receive Date: 20051208
  Receipt Date: 20051108
  Transmission Date: 20060501
  Serious: Yes (Death)
  Sender: FDA-Public Use
  Company Number: 200510966BVD

PATIENT
  Sex: Male
  Weight: 80 kg

DRUGS (1)
  1. GAMIMUNE N 10% [Suspect]
     Indication: GUILLAIN-BARRE SYNDROME
     Dosage: 10 G QD INTRAVENOUS
     Route: 042
     Dates: start: 20040413

REACTIONS (1)
  - DEATH [None]
